FAERS Safety Report 23492462 (Version 1)
Quarter: 2024Q1

REPORT INFORMATION
  Report Type: Spontaneous
  Country: US (occurrence: None)
  Receive Date: 20240207
  Receipt Date: 20240207
  Transmission Date: 20240409
  Serious: Yes (Hospitalization)
  Sender: FDA-Public Use
  Company Number: US-ROCHE-3503081

PATIENT
  Sex: Male

DRUGS (2)
  1. ALECENSA [Suspect]
     Active Substance: ALECTINIB HYDROCHLORIDE
     Indication: Lung neoplasm malignant
     Dosage: ONGOING: YES, TAKE 4 CAPSULES BY MOUTH
     Route: 048
     Dates: start: 20220419
  2. LORBRENA [Concomitant]
     Active Substance: LORLATINIB

REACTIONS (1)
  - Cardiac disorder [Unknown]
